FAERS Safety Report 25206168 (Version 3)
Quarter: 2025Q4

REPORT INFORMATION
  Report Type: Spontaneous
  Country: JP (occurrence: JP)
  Receive Date: 20250417
  Receipt Date: 20251114
  Transmission Date: 20260118
  Serious: Yes (Death, Hospitalization)
  Sender: EISAI
  Company Number: JP-Eisai-202415449_LEN_P_1

PATIENT
  Sex: Male
  Weight: 53 kg

DRUGS (1)
  1. LENVIMA [Suspect]
     Active Substance: LENVATINIB
     Indication: Anaplastic thyroid cancer
     Dosage: DOSE AND FREQUENCY UNKNOWN
     Route: 048

REACTIONS (2)
  - Malignant neoplasm progression [Fatal]
  - Pneumothorax [Recovering/Resolving]

NARRATIVE: CASE EVENT DATE: 20250220
